FAERS Safety Report 18790041 (Version 1)
Quarter: 2021Q1

REPORT INFORMATION
  Report Type: Other
  Country: CA (occurrence: CA)
  Receive Date: 20210125
  Receipt Date: 20210125
  Transmission Date: 20210419
  Serious: Yes (Hospitalization)
  Sender: FDA-Public Use
  Company Number: CA-CELLTRION INC.-2021CA000571

PATIENT

DRUGS (12)
  1. RITUXIMAB (UNKNOWN) [Suspect]
     Active Substance: RITUXIMAB
     Indication: RHEUMATOID ARTHRITIS
  2. DEXILANT [Concomitant]
     Active Substance: DEXLANSOPRAZOLE
  3. WARFARIN [Concomitant]
     Active Substance: WARFARIN
  4. RITUXIMAB (UNKNOWN) [Suspect]
     Active Substance: RITUXIMAB
     Indication: ARTERITIS
  5. BENADRYL [Concomitant]
     Active Substance: DIPHENHYDRAMINE HYDROCHLORIDE
     Indication: PRODUCT USED FOR UNKNOWN INDICATION
     Route: 065
  6. ERGOCALCIFEROL. [Concomitant]
     Active Substance: ERGOCALCIFEROL
  7. VITAMIN C [Concomitant]
     Active Substance: ASCORBIC ACID
  8. RITUXIMAB (UNKNOWN) [Suspect]
     Active Substance: RITUXIMAB
     Indication: VASCULITIS
     Route: 042
  9. RITUXIMAB (UNKNOWN) [Suspect]
     Active Substance: RITUXIMAB
     Indication: LYMPHOMA
  10. RITUXIMAB (UNKNOWN) [Suspect]
     Active Substance: RITUXIMAB
     Indication: IMMUNOGLOBULIN G4 RELATED DISEASE
  11. FOLIC ACID. [Concomitant]
     Active Substance: FOLIC ACID
  12. PREDNISONE. [Concomitant]
     Active Substance: PREDNISONE

REACTIONS (4)
  - Vascular rupture [Unknown]
  - Pharyngeal swelling [Unknown]
  - Intentional product use issue [Unknown]
  - Off label use [Unknown]
